FAERS Safety Report 6219308-2 (Version None)
Quarter: 2009Q2

REPORT INFORMATION
  Report Type: 
  Country: None (occurrence: None)
  Receive Date: 20090609
  Receipt Date: 20090522
  Transmission Date: 20091009
  Serious: Yes (Hospitalization)
  Sender: FDA-Public Use
  Company Number: US-BAYER-200922103GPV

PATIENT
  Age: 36 Year
  Sex: Female

DRUGS (15)
  1. ALEMTUZUMAB [Suspect]
     Indication: MULTIPLE SCLEROSIS
     Route: 042
     Dates: start: 20090420, end: 20090421
  2. METHYLPREDNISOLONE [Concomitant]
     Indication: DRUG USE FOR UNKNOWN INDICATION
     Dates: start: 20090420
  3. METHYLPREDNISOLONE [Concomitant]
     Dates: start: 20090422
  4. ZOLOFT [Concomitant]
     Indication: DRUG USE FOR UNKNOWN INDICATION
  5. PERINDOPRIL ERBUMINE [Concomitant]
     Dates: start: 20070301
  6. ONDANSETRON [Concomitant]
     Indication: DRUG USE FOR UNKNOWN INDICATION
     Dates: start: 20090420, end: 20090421
  7. RANITIDINE [Concomitant]
     Dates: start: 20090419, end: 20090429
  8. VALTREX [Concomitant]
     Indication: DRUG USE FOR UNKNOWN INDICATION
     Dates: start: 20090423
  9. VENTOLIN [Concomitant]
     Dates: start: 19850101
  10. KEFLEX [Concomitant]
     Indication: DRUG USE FOR UNKNOWN INDICATION
     Dates: start: 20090518
  11. PARACETAMOL [Concomitant]
  12. PHENERGAN [Concomitant]
     Indication: DRUG USE FOR UNKNOWN INDICATION
  13. ZYRTEC [Concomitant]
  14. TEMAZEPAM [Concomitant]
     Indication: DRUG USE FOR UNKNOWN INDICATION
  15. ABBICILLIN VT NOS [Concomitant]
     Indication: DRUG USE FOR UNKNOWN INDICATION
     Dosage: FILM TABS

REACTIONS (10)
  - ABDOMINAL PAIN UPPER [None]
  - ASCITES [None]
  - GASTRITIS [None]
  - HEPATOTOXICITY [None]
  - LUNG INFILTRATION [None]
  - NAUSEA [None]
  - PANCREATITIS [None]
  - PLEURAL EFFUSION [None]
  - PNEUMONITIS [None]
  - RASH [None]
